FAERS Safety Report 25865078 (Version 1)
Quarter: 2025Q3

REPORT INFORMATION
  Report Type: Spontaneous
  Country: US (occurrence: None)
  Receive Date: 20250929
  Receipt Date: 20250929
  Transmission Date: 20251020
  Serious: Yes (Hospitalization)
  Sender: FDA-CTU
  Company Number: None

PATIENT
  Sex: Male

DRUGS (2)
  1. TOBI PODHALER [Suspect]
     Active Substance: TOBRAMYCIN
     Indication: Bronchiectasis
     Route: 055
     Dates: start: 20250424
  2. TOBI PODHALER [Suspect]
     Active Substance: TOBRAMYCIN
     Indication: Lower respiratory tract infection

REACTIONS (2)
  - Dyspnoea [None]
  - Therapy cessation [None]
